FAERS Safety Report 4657951-2 (Version None)
Quarter: 2005Q2

REPORT INFORMATION
  Report Type: 
  Country: None (occurrence: None)
  Receive Date: 20050510
  Receipt Date: 20050429
  Transmission Date: 20051028
  Serious: Yes (Hospitalization)
  Sender: FDA-Public Use
  Company Number: 2005CG00853

PATIENT
  Age: 61 Year
  Sex: Female
  Weight: 84 kg

DRUGS (8)
  1. MOPRAL [Suspect]
     Route: 048
  2. SEREVENT [Suspect]
     Route: 055
  3. TAVANIC [Suspect]
     Route: 048
     Dates: start: 20050401, end: 20050408
  4. ALDACTAZINE [Suspect]
     Indication: ESSENTIAL HYPERTENSION
     Route: 048
  5. RIFADIN [Suspect]
     Route: 048
     Dates: start: 20050401
  6. FRAXIPARINE [Suspect]
     Route: 058
  7. DAFLON [Concomitant]
  8. DIAMICRON [Concomitant]

REACTIONS (18)
  - APHASIA [None]
  - ARTHRITIS BACTERIAL [None]
  - BLOOD GLUCOSE INCREASED [None]
  - BLOOD POTASSIUM DECREASED [None]
  - BODY TEMPERATURE INCREASED [None]
  - DISEASE RECURRENCE [None]
  - FACIAL PALSY [None]
  - HAEMATOCRIT DECREASED [None]
  - HAEMOGLOBIN DECREASED [None]
  - HEART RATE INCREASED [None]
  - JOINT DISLOCATION [None]
  - LOSS OF CONSCIOUSNESS [None]
  - PAIN [None]
  - PARTIAL SEIZURES [None]
  - PLATELET COUNT INCREASED [None]
  - PO2 DECREASED [None]
  - URTICARIA [None]
  - WHITE BLOOD CELL COUNT INCREASED [None]
